FAERS Safety Report 17531767 (Version 2)
Quarter: 2020Q1

REPORT INFORMATION
  Report Type: Spontaneous
  Country: US (occurrence: US)
  Receive Date: 20200311
  Receipt Date: 20200327
  Transmission Date: 20200409
  Serious: Yes (Other)
  Sender: FDA-Public Use
  Company Number: US-ASTRAZENECA-2020SE33607

PATIENT
  Age: 71 Year
  Sex: Female
  Weight: 63.5 kg

DRUGS (44)
  1. NORTRIPTYLINE [Concomitant]
     Active Substance: NORTRIPTYLINE
     Dates: start: 20171021
  2. OXYCODONE ACETAMINOPHEN [Concomitant]
     Active Substance: ACETAMINOPHEN\OXYCODONE HYDROCHLORIDE
     Dates: start: 20170106
  3. MELOXICAM. [Concomitant]
     Active Substance: MELOXICAM
     Dates: start: 20090412
  4. MELOXICAM. [Concomitant]
     Active Substance: MELOXICAM
     Dates: start: 20090103
  5. CIPROFLOXACIN. [Concomitant]
     Active Substance: CIPROFLOXACIN
     Dates: start: 20141202
  6. LIVALO [Concomitant]
     Active Substance: PITAVASTATIN CALCIUM
     Dates: start: 20180206
  7. NEXIUM [Suspect]
     Active Substance: ESOMEPRAZOLE MAGNESIUM
     Indication: GASTROOESOPHAGEAL REFLUX DISEASE
     Route: 048
     Dates: start: 1997
  8. BACITRACIN. [Concomitant]
     Active Substance: BACITRACIN
     Dates: start: 20120801
  9. FLUZONE [Concomitant]
     Active Substance: INFLUENZA A VIRUS A/CALIFORNIA/7/2009 X-179A (H1N1) ANTIGEN (FORMALDEHYDE INACTIVATED)\INFLUENZA A VIRUS A/VICTORIA/210/2009 X-187 (H3N2) ANTIGEN (FORMALDEHYDE INACTIVATED)\INFLUENZA B VIRUS B/BRISBANE/60/2008 ANTIGEN (FORMALDEHYDE INACTIVATED)
     Dates: start: 20150924, end: 2016
  10. ATORVASTATIN [Concomitant]
     Active Substance: ATORVASTATIN
     Dates: start: 19991231
  11. ATENOLOL. [Concomitant]
     Active Substance: ATENOLOL
     Dates: start: 20180127
  12. AMLODIPINE BESYLATE. [Concomitant]
     Active Substance: AMLODIPINE BESYLATE
     Dates: start: 20130402
  13. ZANTAC [Concomitant]
     Active Substance: RANITIDINE HYDROCHLORIDE
     Dates: start: 20180206
  14. TYLENOL [Concomitant]
     Active Substance: ACETAMINOPHEN
     Indication: HEADACHE
     Dates: start: 2014
  15. RANITIDINE. [Concomitant]
     Active Substance: RANITIDINE
     Dosage: GENERIC
  16. ZOMIG [Concomitant]
     Active Substance: ZOLMITRIPTAN
     Dates: start: 20111208
  17. TRAMADOL. [Concomitant]
     Active Substance: TRAMADOL
     Dates: start: 20181231
  18. LIDOCAINE. [Concomitant]
     Active Substance: LIDOCAINE
     Dates: start: 20170106
  19. METRONIDAZOLE. [Concomitant]
     Active Substance: METRONIDAZOLE
     Dates: start: 20141203
  20. PRAVASTATIN. [Concomitant]
     Active Substance: PRAVASTATIN
     Dates: start: 20130402
  21. PLAVIX [Concomitant]
     Active Substance: CLOPIDOGREL BISULFATE
     Dates: start: 20111103
  22. ASPIRIN. [Concomitant]
     Active Substance: ASPIRIN
     Dates: start: 20180206
  23. NEXIUM [Suspect]
     Active Substance: ESOMEPRAZOLE MAGNESIUM
     Indication: GASTROOESOPHAGEAL REFLUX DISEASE
     Route: 048
     Dates: start: 20140207
  24. NEXIUM [Suspect]
     Active Substance: ESOMEPRAZOLE MAGNESIUM
     Indication: GASTROOESOPHAGEAL REFLUX DISEASE
     Route: 048
     Dates: start: 2007, end: 2017
  25. RANITIDINE. [Concomitant]
     Active Substance: RANITIDINE
  26. PRIMIDONE. [Concomitant]
     Active Substance: PRIMIDONE
     Dates: start: 20180127
  27. ONDANSETRON [Concomitant]
     Active Substance: ONDANSETRON
     Dates: start: 20180706
  28. TERAZOSIN [Concomitant]
     Active Substance: TERAZOSIN HYDROCHLORIDE
     Dates: start: 20140617
  29. PRILOSEC [Suspect]
     Active Substance: OMEPRAZOLE MAGNESIUM
     Indication: GASTROOESOPHAGEAL REFLUX DISEASE
     Route: 048
  30. LISINOPRIL. [Concomitant]
     Active Substance: LISINOPRIL
     Indication: BACK PAIN
     Dates: start: 2015
  31. LISINOPRIL. [Concomitant]
     Active Substance: LISINOPRIL
     Indication: BACK PAIN
     Dates: start: 20180127
  32. ATENOLOL. [Concomitant]
     Active Substance: ATENOLOL
     Dates: start: 20080603
  33. CALCITRIOL. [Concomitant]
     Active Substance: CALCITRIOL
     Dates: start: 20180127
  34. ZETIA [Concomitant]
     Active Substance: EZETIMIBE
     Dates: start: 20141203
  35. HYDRALAZINE [Concomitant]
     Active Substance: HYDRALAZINE HYDROCHLORIDE
     Indication: PERIPHERAL SWELLING
  36. CODEINE [Concomitant]
     Active Substance: CODEINE
     Indication: RASH
  37. PRILOSEC [Suspect]
     Active Substance: OMEPRAZOLE MAGNESIUM
     Indication: GASTROOESOPHAGEAL REFLUX DISEASE
     Dosage: GENERIC
     Route: 065
     Dates: start: 2001
  38. PRILOSEC [Suspect]
     Active Substance: OMEPRAZOLE MAGNESIUM
     Indication: GASTROOESOPHAGEAL REFLUX DISEASE
     Route: 065
     Dates: start: 20161126
  39. PRILOSEC [Suspect]
     Active Substance: OMEPRAZOLE MAGNESIUM
     Indication: GASTROOESOPHAGEAL REFLUX DISEASE
     Dosage: GENERIC
     Route: 065
     Dates: start: 2007, end: 2017
  40. TRAMADOL. [Concomitant]
     Active Substance: TRAMADOL
     Indication: BACK PAIN
     Dates: start: 2016
  41. ADVIL [Concomitant]
     Active Substance: IBUPROFEN
     Indication: BACK PAIN
     Dates: end: 2014
  42. SIMVASTATIN. [Concomitant]
     Active Substance: SIMVASTATIN
     Dates: start: 20121018
  43. SUMATRIPTAN. [Concomitant]
     Active Substance: SUMATRIPTAN
     Dates: start: 20130107
  44. PROPRANOLOL [Concomitant]
     Active Substance: PROPRANOLOL HYDROCHLORIDE
     Dates: start: 20180206

REACTIONS (3)
  - Chronic kidney disease [Not Recovered/Not Resolved]
  - Hyperparathyroidism secondary [Unknown]
  - Haematuria [Unknown]

NARRATIVE: CASE EVENT DATE: 2014
